FAERS Safety Report 4368309-8 (Version None)
Quarter: 2004Q2

REPORT INFORMATION
  Report Type: 
  Country: None (occurrence: None)
  Receive Date: 20040602
  Receipt Date: 20040525
  Transmission Date: 20050107
  Serious: Yes (Other)
  Sender: FDA-Public Use
  Company Number: PHNR2004AU00991

PATIENT
  Sex: Female
  Weight: 80 kg

DRUGS (1)
  1. SYNTOCINON [Suspect]
     Dosage: UNK, ONCE/SINGLE
     Route: 042
     Dates: start: 20030619, end: 20030619

REACTIONS (4)
  - COUGH [None]
  - INFUSION RELATED REACTION [None]
  - LARYNGOSPASM [None]
  - WHEEZING [None]
